FAERS Safety Report 4559552-3 (Version None)
Quarter: 2005Q1

REPORT INFORMATION
  Report Type: 
  Country: None (occurrence: None)
  Receive Date: 20050124
  Receipt Date: 20050113
  Transmission Date: 20050727
  Serious: Yes (Hospitalization)
  Sender: FDA-Public Use
  Company Number: CH-GLAXOSMITHKLINE-B0365152A

PATIENT
  Age: 60 Year
  Sex: Male

DRUGS (6)
  1. LAMICTAL [Suspect]
     Indication: DEPRESSION
     Route: 048
     Dates: end: 20041008
  2. FLOXYFRAL [Suspect]
     Dosage: 50MG PER DAY
     Route: 048
     Dates: start: 20041006, end: 20041008
  3. ZYPREXA [Suspect]
     Dosage: 5MG PER DAY
     Route: 048
     Dates: start: 20041006, end: 20041008
  4. TRAZODONE HCL [Suspect]
     Dosage: 200MG PER DAY
     Route: 048
     Dates: start: 20041006, end: 20041008
  5. BACTRIM DS [Concomitant]
     Route: 048
     Dates: start: 20041007
  6. BLOPRESS [Concomitant]
     Dosage: 16MG PER DAY
     Dates: start: 20041006, end: 20041008

REACTIONS (2)
  - CONFUSIONAL STATE [None]
  - DISORIENTATION [None]
